FAERS Safety Report 4427522-1 (Version None)
Quarter: 2004Q3

REPORT INFORMATION
  Report Type: 
  Country: None (occurrence: None)
  Receive Date: 20040812
  Receipt Date: 20040728
  Transmission Date: 20050211
  Serious: Yes (Hospitalization)
  Sender: FDA-Public Use
  Company Number: 2004AP03929

PATIENT
  Age: 44 Year
  Sex: Female

DRUGS (7)
  1. IRESSA [Suspect]
     Indication: NON-SMALL CELL LUNG CANCER
     Dosage: 250 MG DAILY PO
     Route: 048
     Dates: start: 20040601, end: 20040602
  2. GEMCITABINE [Concomitant]
  3. CISPLATIN [Concomitant]
  4. DOCETAXEL [Concomitant]
  5. OXYCONTIN [Concomitant]
  6. PROSPAN [Concomitant]
  7. NO MATCH [Concomitant]

REACTIONS (5)
  - EMPYEMA [None]
  - ENTEROBACTER INFECTION [None]
  - MALIGNANT NEOPLASM PROGRESSION [None]
  - NON-SMALL CELL LUNG CANCER STAGE IIIB [None]
  - PYREXIA [None]
